FAERS Safety Report 25752351 (Version 1)
Quarter: 2025Q3

REPORT INFORMATION
  Report Type: Spontaneous
  Country: GB (occurrence: GB)
  Receive Date: 20250902
  Receipt Date: 20250902
  Transmission Date: 20251020
  Serious: Yes (Congenital Anomaly, Other)
  Sender: PFIZER
  Company Number: GB-PFIZER INC-202500171840

PATIENT
  Sex: Male

DRUGS (3)
  1. SULFASALAZINE [Suspect]
     Active Substance: SULFASALAZINE
     Indication: Spondyloarthropathy
     Route: 064
     Dates: start: 2021
  2. FOLIC ACID [Concomitant]
     Active Substance: FOLIC ACID
     Indication: Vitamin supplementation
     Route: 064
  3. ADALIMUMAB [Concomitant]
     Active Substance: ADALIMUMAB
     Indication: Spondyloarthropathy
     Route: 064
     Dates: start: 2024

REACTIONS (4)
  - Ventricular septal defect [Recovering/Resolving]
  - Maternal exposure during pregnancy [Unknown]
  - Weight gain poor [Unknown]
  - Off label use [Unknown]

NARRATIVE: CASE EVENT DATE: 20210101
